FAERS Safety Report 26011770 (Version 1)
Quarter: 2025Q4

REPORT INFORMATION
  Report Type: Spontaneous
  Country: US (occurrence: US)
  Receive Date: 20251107
  Receipt Date: 20251107
  Transmission Date: 20260118
  Serious: No
  Sender: BAYER HEALTHCARE LLC
  Company Number: US-BAYER-2025A146654

PATIENT
  Age: 80 Year
  Sex: Female

DRUGS (1)
  1. ALEVE [Suspect]
     Active Substance: NAPROXEN SODIUM
     Indication: Back pain
     Dosage: 1 DF, QD
     Route: 048
     Dates: start: 20251018, end: 20251104

REACTIONS (2)
  - Drug ineffective [Recovering/Resolving]
  - Product use in unapproved indication [None]

NARRATIVE: CASE EVENT DATE: 20251018
